FAERS Safety Report 9774935 (Version 1)
Quarter: 2013Q4

REPORT INFORMATION
  Report Type: Spontaneous
  Country: US (occurrence: US)
  Receive Date: 20131220
  Receipt Date: 20131220
  Transmission Date: 20140711
  Serious: No
  Sender: FDA-Public Use
  Company Number: US-GLAXOSMITHKLINE-A1019836A

PATIENT
  Age: 98 Year
  Sex: Male

DRUGS (6)
  1. AVODART [Suspect]
     Indication: BENIGN PROSTATIC HYPERPLASIA
     Route: 048
     Dates: start: 2009
  2. RAPAFLO [Suspect]
     Dates: start: 2009
  3. TORSEMIDE [Suspect]
  4. TORSEMIDE [Concomitant]
  5. RAPAFLO [Concomitant]
  6. DOXYCYCLINE [Concomitant]

REACTIONS (2)
  - Syncope [Recovered/Resolved]
  - Orthostatic hypotension [Unknown]
